FAERS Safety Report 6628445-X (Version None)
Quarter: 2010Q1

REPORT INFORMATION
  Report Type: 
  Country: None (occurrence: None)
  Receive Date: 20100311
  Receipt Date: 20100226
  Transmission Date: 20100710
  Serious: Yes (Other)
  Sender: FDA-Public Use
  Company Number: JP-PFIZER INC-2010025320

PATIENT
  Age: 84 Year
  Sex: Female
  Weight: 34 kg

DRUGS (11)
  1. CELECOX [Suspect]
     Indication: BACK PAIN
     Dosage: 200 MG, UNKNOWN/D
     Route: 048
     Dates: start: 20100210, end: 20100215
  2. CELECOX [Suspect]
     Indication: SCOLIOSIS
  3. ALENDRONATE SODIUM [Concomitant]
     Indication: OSTEOPOROSIS
     Dosage: UNK
     Route: 048
     Dates: start: 20070416
  4. GLAKAY [Concomitant]
     Indication: OSTEOPOROSIS
     Dosage: UNK
  5. BIOFERMIN [Concomitant]
     Indication: CONSTIPATION
     Dosage: UNK
     Dates: start: 20060201
  6. MAGNESIUM OXIDE [Concomitant]
     Indication: CONSTIPATION
     Dosage: UNK
  7. POLLAKISU [Concomitant]
     Indication: POLLAKIURIA
     Dosage: UNK
     Dates: start: 20061108
  8. MUCOSTA [Concomitant]
     Indication: SCOLIOSIS
     Dosage: UNK
     Dates: start: 20100210
  9. TIMOPTOL-XE [Concomitant]
     Dosage: UNK
     Dates: start: 20070129
  10. TRAVATAN [Concomitant]
     Dosage: UNK
     Dates: start: 20081219
  11. TRUSOPT [Concomitant]
     Dosage: UNK
     Dates: start: 20070129

REACTIONS (1)
  - RETINAL VEIN OCCLUSION [None]
